FAERS Safety Report 4526454-8 (Version None)
Quarter: 2004Q4

REPORT INFORMATION
  Report Type: 
  Country: None (occurrence: None)
  Receive Date: 20041214
  Receipt Date: 20041202
  Transmission Date: 20050328
  Serious: Yes (Other)
  Sender: FDA-Public Use
  Company Number: DE-JNJFOC-20041200968

PATIENT
  Sex: Female

DRUGS (7)
  1. TOPAMAX [Suspect]
     Route: 049
  2. TOPAMAX [Suspect]
     Route: 049
  3. TOPAMAX [Suspect]
     Route: 049
  4. TOPAMAX [Suspect]
     Dosage: 125/150 MG
     Route: 049
  5. TOPAMAX [Suspect]
     Route: 049
  6. TOPAMAX [Suspect]
     Indication: CLUSTER HEADACHE
     Route: 049
  7. VERAPAMIL [Concomitant]
     Indication: CLUSTER HEADACHE
     Route: 049

REACTIONS (6)
  - AFFECT LABILITY [None]
  - APHASIA [None]
  - DRUG INEFFECTIVE [None]
  - INTRAOCULAR PRESSURE INCREASED [None]
  - MUSCLE TWITCHING [None]
  - PARAESTHESIA [None]
